FAERS Safety Report 5060739-4 (Version None)
Quarter: 2006Q2

REPORT INFORMATION
  Report Type: 
  Country: None (occurrence: None)
  Receive Date: 20060630
  Receipt Date: 20060322
  Transmission Date: 20061013
  Serious: Yes (Hospitalization)
  Sender: FDA-Public Use
  Company Number: US200603006012

PATIENT
  Age: 14 Year
  Sex: Female

DRUGS (1)
  1. HUMALOG [Suspect]
     Indication: DIABETES MELLITUS INSULIN-DEPENDENT

REACTIONS (3)
  - BLOOD GLUCOSE FLUCTUATION [None]
  - BLOOD INSULIN INCREASED [None]
  - HYPERGLYCAEMIA [None]
